FAERS Safety Report 14563203 (Version 3)
Quarter: 2018Q1

REPORT INFORMATION
  Report Type: Spontaneous
  Country: SE (occurrence: SE)
  Receive Date: 20180222
  Receipt Date: 20180321
  Transmission Date: 20180509
  Serious: Yes (Death)
  Sender: FDA-Public Use
  Company Number: SE-TEVA-2018-SE-858582

PATIENT
  Age: 57 Year
  Sex: Male

DRUGS (7)
  1. ENALAPRIL [Suspect]
     Active Substance: ENALAPRIL
     Route: 048
     Dates: start: 20080130, end: 20170901
  2. SPIRONOLACTONE. [Suspect]
     Active Substance: SPIRONOLACTONE
     Route: 048
     Dates: start: 20170613, end: 20170901
  3. WARAN [Concomitant]
     Active Substance: WARFARIN SODIUM
  4. SERETIDE DISKUS FORTE [Concomitant]
  5. ISOPTIN SR [Suspect]
     Active Substance: VERAPAMIL HYDROCHLORIDE
     Route: 048
     Dates: start: 20090622, end: 20170901
  6. DIGOXIN. [Suspect]
     Active Substance: DIGOXIN
     Indication: CARDIAC FAILURE
     Route: 048
     Dates: start: 20111202, end: 20170901
  7. FURIX [Concomitant]
     Active Substance: FUROSEMIDE
     Dates: start: 20170706

REACTIONS (4)
  - Seizure [Fatal]
  - Loss of consciousness [Fatal]
  - Cardiac arrest [Fatal]
  - Toxicity to various agents [Fatal]

NARRATIVE: CASE EVENT DATE: 20170901
